FAERS Safety Report 5060809-0 (Version None)
Quarter: 2006Q2

REPORT INFORMATION
  Report Type: 
  Country: None (occurrence: None)
  Receive Date: 20060630
  Receipt Date: 20050520
  Transmission Date: 20061013
  Serious: No
  Sender: FDA-Public Use
  Company Number: 405535

PATIENT
  Age: 38 Year
  Sex: Female
  Weight: 49.9 kg

DRUGS (1)
  1. CELLCEPT [Suspect]
     Indication: DRUG USE FOR UNKNOWN INDICATION

REACTIONS (2)
  - ACCIDENTAL EXPOSURE [None]
  - NO ADVERSE EFFECT [None]
